FAERS Safety Report 17666781 (Version 1)
Quarter: 2020Q2

REPORT INFORMATION
  Report Type: Spontaneous
  Country: US (occurrence: US)
  Receive Date: 20200414
  Receipt Date: 20200414
  Transmission Date: 20200713
  Serious: Yes (Hospitalization)
  Sender: FDA-Public Use
  Company Number: None

PATIENT
  Age: 44 Year
  Sex: Female

DRUGS (1)
  1. KEVZARA [Suspect]
     Active Substance: SARILUMAB
     Indication: RHEUMATOID ARTHRITIS
     Route: 058
     Dates: start: 20200313

REACTIONS (7)
  - Erythema [None]
  - Feeling hot [None]
  - Product contamination [None]
  - Oedema peripheral [None]
  - Product quality issue [None]
  - Injection site swelling [None]
  - Pain in extremity [None]

NARRATIVE: CASE EVENT DATE: 20200408
